FAERS Safety Report 9003603 (Version 1)
Quarter: 2013Q1

REPORT INFORMATION
  Report Type: Spontaneous
  Country: US (occurrence: US)
  Receive Date: 20130108
  Receipt Date: 20130108
  Transmission Date: 20140127
  Serious: No
  Sender: FDA-Public Use
  Company Number: US-ASTRAZENECA-2012SE25497

PATIENT
  Age: 70 Year
  Sex: Female

DRUGS (2)
  1. ARIMIDEX [Suspect]
     Dosage: GENERIC
     Route: 048
  2. ARIMIDEX [Suspect]
     Route: 048

REACTIONS (5)
  - Drug hypersensitivity [Unknown]
  - Pain [Unknown]
  - Skin irritation [Unknown]
  - Dermatitis allergic [Unknown]
  - Bone density abnormal [Unknown]
